FAERS Safety Report 16094390 (Version 3)
Quarter: 2019Q2

REPORT INFORMATION
  Report Type: Spontaneous
  Country: US (occurrence: US)
  Receive Date: 20190320
  Receipt Date: 20190628
  Transmission Date: 20190711
  Serious: Yes (Hospitalization, Other)
  Sender: FDA-Public Use
  Company Number: US-PFIZER INC-2019120771

PATIENT
  Age: 83 Year
  Sex: Female
  Weight: 82.1 kg

DRUGS (3)
  1. AMOXICILLIN. [Concomitant]
     Active Substance: AMOXICILLIN
     Indication: ANTIBIOTIC THERAPY
     Dosage: UNK
     Dates: start: 201810, end: 201810
  2. TIKOSYN [Suspect]
     Active Substance: DOFETILIDE
     Indication: ATRIAL FIBRILLATION
     Dosage: 250 UG, 2X/DAY (250MCG OR 0.25MG)
     Route: 048
     Dates: start: 201203
  3. TIKOSYN [Suspect]
     Active Substance: DOFETILIDE
     Indication: CARDIAC FAILURE

REACTIONS (6)
  - Contusion [Unknown]
  - Dizziness [Recovering/Resolving]
  - Weight decreased [Unknown]
  - Malaise [Unknown]
  - Fall [Recovering/Resolving]
  - Hypotension [Unknown]

NARRATIVE: CASE EVENT DATE: 20181017
